FAERS Safety Report 22589503 (Version 5)
Quarter: 2024Q1

REPORT INFORMATION
  Report Type: Spontaneous
  Country: US (occurrence: US)
  Receive Date: 20230612
  Receipt Date: 20240318
  Transmission Date: 20240410
  Serious: Yes (Other)
  Sender: FDA-Public Use
  Company Number: US-PFIZER INC-PV202200119338

PATIENT
  Age: 54 Year
  Sex: Male
  Weight: 107.5 kg

DRUGS (3)
  1. FRAGMIN [Suspect]
     Active Substance: DALTEPARIN SODIUM
     Indication: Deep vein thrombosis
     Dosage: DAILY (18,000 ANTI-XA UNIT/0.72 ML)
     Route: 058
  2. FRAGMIN [Suspect]
     Active Substance: DALTEPARIN SODIUM
     Indication: Embolism
     Dosage: 18000 IU, 1X/DAY (INJECT 18,000 UNITS UNDER THE SKIN DAILY (1 SYRINGE DAILY))
     Route: 058
     Dates: start: 200709
  3. FRAGMIN [Suspect]
     Active Substance: DALTEPARIN SODIUM
     Indication: Protein C deficiency

REACTIONS (5)
  - Thrombosis [Unknown]
  - Foot amputation [Unknown]
  - Leg amputation [Unknown]
  - Product dispensing error [Unknown]
  - Product prescribing issue [Unknown]
